FAERS Safety Report 5367961-8 (Version None)
Quarter: 2007Q2

REPORT INFORMATION
  Report Type: 
  Country: None (occurrence: None)
  Receive Date: 20070622
  Receipt Date: 20070612
  Transmission Date: 20071010
  Serious: Yes (Other)
  Sender: FDA-Public Use
  Company Number: JP-PFIZER INC-2007042880

PATIENT
  Age: 54 Year
  Sex: Male

DRUGS (5)
  1. NORVASC [Suspect]
     Indication: HYPERTENSION
     Route: 048
     Dates: start: 20040101, end: 20070527
  2. ALLOPURINOL [Suspect]
     Route: 048
     Dates: start: 20040101, end: 20070527
  3. BLOPRESS [Suspect]
     Indication: HYPERTENSION
     Route: 048
  4. KREMEZIN [Suspect]
     Route: 048
     Dates: start: 20040101, end: 20070527
  5. LACTOBACILLUS BIFIDUS, LYOPHILIZED [Suspect]
     Route: 048
     Dates: start: 20070101, end: 20070527

REACTIONS (2)
  - ECZEMA [None]
  - LIP OEDEMA [None]
